FAERS Safety Report 21856245 (Version 1)
Quarter: 2023Q1

REPORT INFORMATION
  Report Type: Spontaneous
  Country: FR (occurrence: FR)
  Receive Date: 20230112
  Receipt Date: 20230112
  Transmission Date: 20230418
  Serious: Yes (Hospitalization)
  Sender: FDA-Public Use
  Company Number: None

PATIENT
  Age: 32 Year
  Sex: Male
  Weight: 128 kg

DRUGS (16)
  1. DAPTOMYCIN [Suspect]
     Active Substance: DAPTOMYCIN
     Indication: Staphylococcal bacteraemia
     Dosage: 1200 MILLIGRAM, QD
     Route: 042
     Dates: start: 20221016, end: 20221017
  2. GENTAMICIN [Suspect]
     Active Substance: GENTAMICIN
     Indication: Staphylococcal bacteraemia
     Dosage: 380 MILLIGRAM, QD
     Route: 042
     Dates: start: 20221016, end: 20221017
  3. CLOXACILLIN SODIUM [Suspect]
     Active Substance: CLOXACILLIN SODIUM
     Indication: Staphylococcal bacteraemia
     Dosage: 2 GRAM, QD
     Route: 042
     Dates: start: 20221017, end: 20221020
  4. DIAZEPAM [Concomitant]
     Active Substance: DIAZEPAM
  5. CEFAZOLIN [Concomitant]
     Active Substance: CEFAZOLIN
  6. DALTEPARIN SODIUM [Concomitant]
     Active Substance: DALTEPARIN SODIUM
  7. KETAMINE [Concomitant]
     Active Substance: KETAMINE
  8. CALCIFEDIOL [Concomitant]
     Active Substance: CALCIFEDIOL
  9. OXYCODONE [Concomitant]
     Active Substance: OXYCODONE
  10. ACETAMINOPHEN [Concomitant]
     Active Substance: ACETAMINOPHEN
  11. INNOHEP [Concomitant]
     Active Substance: TINZAPARIN SODIUM
  12. OXYCODONE HYDROCHLORIDE [Concomitant]
     Active Substance: OXYCODONE HYDROCHLORIDE
  13. HYDROXYZINE HYDROCHLORIDE [Concomitant]
     Active Substance: HYDROXYZINE HYDROCHLORIDE
  14. MORPHINE [Concomitant]
     Active Substance: MORPHINE
  15. POLYETHYLENE GLYCOLS [Concomitant]
     Active Substance: POLYETHYLENE GLYCOLS
  16. NEFOPAM HYDROCHLORIDE [Concomitant]
     Active Substance: NEFOPAM HYDROCHLORIDE

REACTIONS (2)
  - Hepatic cytolysis [Recovering/Resolving]
  - Gamma-glutamyltransferase increased [Not Recovered/Not Resolved]

NARRATIVE: CASE EVENT DATE: 20221021
